FAERS Safety Report 19158289 (Version 1)
Quarter: 2021Q2

REPORT INFORMATION
  Report Type: Spontaneous
  Country: CN (occurrence: CN)
  Receive Date: 20210420
  Receipt Date: 20210420
  Transmission Date: 20210717
  Serious: Yes (Hospitalization)
  Sender: FDA-Public Use
  Company Number: CN-PFIZER INC-2021395299

PATIENT
  Age: 73 Year
  Sex: Male
  Weight: 67 kg

DRUGS (2)
  1. LI ZHI [Suspect]
     Active Substance: TORSEMIDE
     Indication: ACUTE KIDNEY INJURY
     Dosage: 60 MG, 1X/DAY
     Route: 048
     Dates: start: 20210302, end: 20210408
  2. MEDROL [Suspect]
     Active Substance: METHYLPREDNISOLONE
     Indication: ACUTE KIDNEY INJURY
     Dosage: 4 MG, 1X/DAY
     Route: 048
     Dates: start: 20210302, end: 20210308

REACTIONS (6)
  - Acute kidney injury [Unknown]
  - Decreased appetite [Unknown]
  - Medication error [Unknown]
  - Constipation [Unknown]
  - Asthenia [Unknown]
  - Diarrhoea [Unknown]

NARRATIVE: CASE EVENT DATE: 202103
